FAERS Safety Report 4465452-X (Version None)
Quarter: 2004Q3

REPORT INFORMATION
  Report Type: 
  Country: None (occurrence: None)
  Receive Date: 20040930
  Receipt Date: 20040914
  Transmission Date: 20050211
  Serious: Yes (Other)
  Sender: FDA-Public Use
  Company Number: ZANA001348

PATIENT
  Age: 74 Year
  Sex: Female

DRUGS (1)
  1. SIRDALUD (TIZANIDINE HYDROCHLORIDE) [Suspect]
     Dosage: ORAL
     Route: 048
     Dates: start: 20040901

REACTIONS (2)
  - CARDIAC ENZYMES INCREASED [None]
  - CARDIAC FAILURE [None]
